FAERS Safety Report 5624083-6 (Version None)
Quarter: 2008Q1

REPORT INFORMATION
  Report Type: 
  Country: None (occurrence: None)
  Receive Date: 20080213
  Receipt Date: 20070711
  Transmission Date: 20080703
  Serious: No
  Sender: FDA-Public Use
  Company Number: US-KINGPHARMUSA00001-K200700883

PATIENT

DRUGS (3)
  1. EPIPEN [Suspect]
     Indication: HYPERSENSITIVITY
     Dosage: .3 MG, SINGLE
  2. DIPHENHYDRAMINE HCL [Concomitant]
  3. PEPCID AC [Concomitant]
     Dosage: 20 MG, UNK

REACTIONS (1)
  - DRUG INEFFECTIVE [None]
